FAERS Safety Report 5930342-X (Version None)
Quarter: 2008Q4

REPORT INFORMATION
  Report Type: 
  Country: None (occurrence: None)
  Receive Date: 20081023
  Receipt Date: 20081016
  Transmission Date: 20090506
  Serious: Yes (Other)
  Sender: FDA-Public Use
  Company Number: 2008SP019831

PATIENT
  Age: 33 Year
  Sex: Female

DRUGS (6)
  1. DESLORATADINE [Suspect]
     Indication: NASAL POLYPS
     Dosage: 5 MG;QD;PO
     Route: 048
     Dates: start: 20030901, end: 20080630
  2. SYMBICORT [Concomitant]
  3. PULMICORT-100 [Concomitant]
  4. FILICINE [Concomitant]
  5. RESOFERON [Concomitant]
  6. CALCIORAL [Concomitant]

REACTIONS (3)
  - DRUG EXPOSURE DURING PREGNANCY [None]
  - PYREXIA [None]
  - VAGINAL HAEMORRHAGE [None]
